FAERS Safety Report 15122188 (Version 5)
Quarter: 2018Q4

REPORT INFORMATION
  Report Type: Report from Study
  Country: PL (occurrence: PL)
  Receive Date: 20180709
  Receipt Date: 20181004
  Transmission Date: 20190204
  Serious: Yes (Other)
  Sender: FDA-Public Use
  Company Number: PL-PFIZER INC-2018272036

PATIENT

DRUGS (2)
  1. ALPRAZOLAM. [Suspect]
     Active Substance: ALPRAZOLAM
     Dosage: UNK
  2. BUPRENORPHINE. [Interacting]
     Active Substance: BUPRENORPHINE
     Indication: CANCER PAIN
     Dosage: UNK

REACTIONS (3)
  - Delirium [Unknown]
  - Drug interaction [Unknown]
  - Confusional state [Unknown]
